FAERS Safety Report 12884147 (Version 2)
Quarter: 2016Q4

REPORT INFORMATION
  Report Type: Report from Study
  Country: NL (occurrence: NL)
  Receive Date: 20161026
  Receipt Date: 20161228
  Transmission Date: 20170207
  Serious: Yes (Hospitalization, Other)
  Sender: FDA-Public Use
  Company Number: NL-AMGEN-NLDSL2016146809

PATIENT
  Age: 23 Year
  Sex: Female

DRUGS (1)
  1. NEULASTA [Suspect]
     Active Substance: PEGFILGRASTIM
     Indication: NEUTROPENIA
     Dosage: 0.6 ML, Q3WK (1.00 STUKS)
     Route: 058

REACTIONS (3)
  - Pulmonary embolism [Unknown]
  - Tumour excision [Unknown]
  - Groin abscess [Unknown]

NARRATIVE: CASE EVENT DATE: 20160929
